FAERS Safety Report 13998470 (Version 1)
Quarter: 2017Q3

REPORT INFORMATION
  Report Type: Spontaneous
  Country: US (occurrence: US)
  Receive Date: 20170919
  Receipt Date: 20170919
  Transmission Date: 20171128
  Serious: No
  Sender: FDA-Public Use
  Company Number: None

PATIENT
  Age: 29 Year
  Sex: Female
  Weight: 56.25 kg

DRUGS (7)
  1. EFFEXOR [Concomitant]
     Active Substance: VENLAFAXINE HYDROCHLORIDE
  2. ADDERALL [Suspect]
     Active Substance: AMPHETAMINE ASPARTATE\AMPHETAMINE SULFATE\DEXTROAMPHETAMINE SACCHARATE\DEXTROAMPHETAMINE SULFATE
     Dosage: ?          QUANTITY:60 TABLET(S);?
     Route: 048
     Dates: start: 20170914, end: 20170917
  3. ORTHO TRI CYCLEN LO [Concomitant]
     Active Substance: ETHINYL ESTRADIOL\NORGESTIMATE
  4. VALIUM [Concomitant]
     Active Substance: DIAZEPAM
  5. VITAMIN C [Concomitant]
     Active Substance: ASCORBIC ACID
  6. NAPROXEN. [Concomitant]
     Active Substance: NAPROXEN
  7. MULTIVITAMIN [Concomitant]
     Active Substance: VITAMINS

REACTIONS (5)
  - Fatigue [None]
  - Drug effect decreased [None]
  - Disturbance in attention [None]
  - Product substitution issue [None]
  - Product physical issue [None]

NARRATIVE: CASE EVENT DATE: 20170914
